FAERS Safety Report 13362370 (Version 3)
Quarter: 2017Q2

REPORT INFORMATION
  Report Type: Spontaneous
  Country: JP (occurrence: JP)
  Receive Date: 20170323
  Receipt Date: 20170419
  Transmission Date: 20170830
  Serious: Yes (Hospitalization)
  Sender: FDA-Public Use
  Company Number: PHJP2017JP008774

PATIENT
  Age: 57 Year
  Sex: Female
  Weight: 63 kg

DRUGS (17)
  1. LAMISIL [Concomitant]
     Active Substance: TERBINAFINE HYDROCHLORIDE
     Indication: TINEA INFECTION
     Dosage: UNK
     Route: 065
  2. SYAKUYAKUKANZOTO [Concomitant]
     Active Substance: UNSPECIFIED INGREDIENT
     Indication: MUSCLE SPASMS
     Dosage: 2.5 G, TID
     Route: 048
     Dates: end: 20170302
  3. PREDNISOLONE. [Concomitant]
     Active Substance: PREDNISOLONE
     Indication: PSORIATIC ARTHROPATHY
     Dosage: 4.5 MG, QD
     Route: 048
  4. FUNGIZONE [Concomitant]
     Active Substance: AMPHOTERICIN B
     Indication: PROPHYLAXIS
     Dosage: UNK
     Route: 065
  5. CALONAL [Concomitant]
     Active Substance: ACETAMINOPHEN
     Indication: PSORIATIC ARTHROPATHY
     Dosage: 300 MG, QD
     Route: 048
     Dates: end: 20170302
  6. ALLELOCK [Concomitant]
     Active Substance: OLOPATADINE HYDROCHLORIDE
     Indication: DERMATITIS ALLERGIC
     Dosage: 5 MG, BID
     Route: 048
     Dates: end: 20170302
  7. COSENTYX [Suspect]
     Active Substance: SECUKINUMAB
     Dosage: 300 MG, 4W
     Route: 058
     Dates: start: 201604, end: 201703
  8. DERMOVATE [Concomitant]
     Active Substance: CLOBETASOL
     Indication: PSORIASIS
     Dosage: UNK
     Route: 062
  9. GASTER [Concomitant]
     Active Substance: FAMOTIDINE
     Indication: GASTRIC ULCER
     Dosage: 20 MG, QD
     Route: 048
     Dates: end: 20170302
  10. BEZATOL [Concomitant]
     Active Substance: BEZAFIBRATE
     Indication: HYPERLIPIDAEMIA
     Dosage: 400 MG, QD
     Route: 048
     Dates: end: 20170302
  11. CARERAM [Concomitant]
     Active Substance: IGURATIMOD
     Indication: PSORIATIC ARTHROPATHY
     Dosage: 50 MG, QD
     Route: 048
     Dates: start: 20160602, end: 20170302
  12. BIOTIN [Concomitant]
     Active Substance: BIOTIN
     Indication: PSORIATIC ARTHROPATHY
     Dosage: 1.5 G, TID
     Route: 048
     Dates: end: 20170302
  13. FLAVITAN [Concomitant]
     Active Substance: FLAVIN ADENINE DINUCLEOTIDE
     Indication: STOMATITIS
     Dosage: 20 MG, BID
     Route: 048
     Dates: end: 20170302
  14. COSENTYX [Suspect]
     Active Substance: SECUKINUMAB
     Indication: PSORIATIC ARTHROPATHY
     Dosage: 300 MG, QW/PER ADMINISTRATION
     Route: 058
     Dates: start: 201603
  15. BIO-THREE [Concomitant]
     Active Substance: HERBALS
     Indication: ENTEROCOLITIS
     Dosage: 2 DF, TID
     Route: 048
     Dates: end: 20170302
  16. PREDNISOLONE. [Concomitant]
     Active Substance: PREDNISOLONE
     Dosage: 30 MG, UNK
     Route: 048
     Dates: start: 20170405
  17. TRAMCET [Concomitant]
     Active Substance: ACETAMINOPHEN\TRAMADOL
     Indication: ARTHRALGIA
     Dosage: UNK
     Route: 065

REACTIONS (6)
  - Occult blood [Unknown]
  - Colitis ulcerative [Recovering/Resolving]
  - Flank pain [Unknown]
  - Lower gastrointestinal haemorrhage [Unknown]
  - Diarrhoea [Unknown]
  - Pyrexia [Unknown]

NARRATIVE: CASE EVENT DATE: 201702
